FAERS Safety Report 24921561 (Version 1)
Quarter: 2025Q1

REPORT INFORMATION
  Report Type: Report from Study
  Country: BR (occurrence: BR)
  Receive Date: 20250204
  Receipt Date: 20250204
  Transmission Date: 20250408
  Serious: Yes (Other)
  Sender: TAKEDA
  Company Number: BR-TAKEDA-2023TUS099348

PATIENT
  Age: 61 Year
  Sex: Female

DRUGS (1)
  1. VEDOLIZUMAB [Suspect]
     Active Substance: VEDOLIZUMAB
     Indication: Colitis ulcerative
     Dosage: 300 MILLIGRAM, Q4WEEKS
     Dates: start: 20230224

REACTIONS (10)
  - Herpes ophthalmic [Recovering/Resolving]
  - Rectal haemorrhage [Not Recovered/Not Resolved]
  - Oral herpes [Recovering/Resolving]
  - Inappropriate schedule of product administration [Not Recovered/Not Resolved]
  - Product availability issue [Unknown]
  - Influenza [Recovered/Resolved]
  - Dysphonia [Unknown]
  - Fall [Recovering/Resolving]
  - Clavicle fracture [Recovering/Resolving]
  - Shoulder fracture [Recovering/Resolving]

NARRATIVE: CASE EVENT DATE: 20230826
